FAERS Safety Report 20186493 (Version 1)
Quarter: 2021Q4

REPORT INFORMATION
  Report Type: Spontaneous
  Country: US (occurrence: US)
  Receive Date: 20211215
  Receipt Date: 20211215
  Transmission Date: 20220304
  Serious: Yes (Hospitalization, Other)
  Sender: FDA-Public Use
  Company Number: US-SA-SAC20211213000232

PATIENT
  Age: 71 Year
  Sex: Female

DRUGS (7)
  1. PLAVIX [Suspect]
     Active Substance: CLOPIDOGREL BISULFATE
     Route: 065
  2. ELIQUIS [Concomitant]
     Active Substance: APIXABAN
     Dosage: UNK UNK, BID
     Route: 048
  3. COREG [Concomitant]
     Active Substance: CARVEDILOL
  4. AMIODARONE [Concomitant]
     Active Substance: AMIODARONE
  5. ISOSORBIDE MONONITRATE [Concomitant]
     Active Substance: ISOSORBIDE MONONITRATE
     Dosage: 30 MG
  6. LASIX [Concomitant]
     Active Substance: FUROSEMIDE
  7. ATIVAN [Concomitant]
     Active Substance: LORAZEPAM
     Dosage: UNK UNK, PRN

REACTIONS (6)
  - Pneumonia [Unknown]
  - Body temperature increased [Unknown]
  - Bacterial test positive [Unknown]
  - Weight decreased [Unknown]
  - Erythema [Unknown]
  - Abdominal pain upper [Unknown]
